FAERS Safety Report 20003309 (Version 4)
Quarter: 2021Q4

REPORT INFORMATION
  Report Type: Report from Study
  Country: CN (occurrence: CN)
  Receive Date: 20211027
  Receipt Date: 20211112
  Transmission Date: 20220303
  Serious: Yes (Hospitalization)
  Sender: FDA-Public Use
  Company Number: CN-KARYOPHARM-2021KPT001307

PATIENT
  Age: 58 Year
  Sex: Female

DRUGS (29)
  1. SELINEXOR [Suspect]
     Active Substance: SELINEXOR
     Indication: Peripheral T-cell lymphoma unspecified
     Dosage: 60 MG, QD
     Route: 048
     Dates: start: 20210617, end: 20210617
  2. SELINEXOR [Suspect]
     Active Substance: SELINEXOR
     Indication: Angiocentric lymphoma
     Dosage: 40 MG, QD
     Route: 048
     Dates: start: 20210624, end: 20210624
  3. SELINEXOR [Suspect]
     Active Substance: SELINEXOR
     Dosage: 40 MG, QD
     Route: 048
     Dates: start: 20210708, end: 20210708
  4. SELINEXOR [Suspect]
     Active Substance: SELINEXOR
     Dosage: 40 MG, QD
     Route: 048
     Dates: start: 20210715, end: 20210715
  5. SELINEXOR [Suspect]
     Active Substance: SELINEXOR
     Dosage: 40 MG, QD
     Route: 048
     Dates: start: 20210730, end: 20210730
  6. SELINEXOR [Suspect]
     Active Substance: SELINEXOR
     Dosage: 40 MG, QD
     Route: 048
     Dates: start: 20210806, end: 20210806
  7. SELINEXOR [Suspect]
     Active Substance: SELINEXOR
     Dosage: 20 MG, QD
     Route: 048
     Dates: start: 20210819, end: 20210819
  8. SELINEXOR [Suspect]
     Active Substance: SELINEXOR
     Dosage: 40 MG, QD
     Route: 048
     Dates: start: 20210917, end: 20210917
  9. SELINEXOR [Suspect]
     Active Substance: SELINEXOR
     Dosage: 40 MG, QD
     Route: 048
     Dates: start: 20210926, end: 20210926
  10. SELINEXOR [Suspect]
     Active Substance: SELINEXOR
     Dosage: 40 MG, QD
     Route: 048
     Dates: start: 20211009, end: 20211009
  11. SELINEXOR [Suspect]
     Active Substance: SELINEXOR
     Dosage: 60 MG, QD
     Route: 048
     Dates: start: 20211010, end: 20211010
  12. SELINEXOR [Suspect]
     Active Substance: SELINEXOR
     Dosage: 40 MG
     Route: 048
     Dates: start: 20211029, end: 20211029
  13. GEMCITABINE [Suspect]
     Active Substance: GEMCITABINE
     Indication: Peripheral T-cell lymphoma unspecified
     Dosage: 1.32 G, QD
     Route: 042
     Dates: start: 20210617, end: 20210617
  14. GEMCITABINE [Suspect]
     Active Substance: GEMCITABINE
     Indication: Angiocentric lymphoma
     Dosage: 1.3 G, QD
     Route: 042
     Dates: start: 20210624, end: 20210624
  15. GEMCITABINE [Suspect]
     Active Substance: GEMCITABINE
     Dosage: 1.29 G, QD
     Route: 042
     Dates: start: 20210708, end: 20210708
  16. GEMCITABINE [Suspect]
     Active Substance: GEMCITABINE
     Dosage: 1.29 G, QD
     Route: 042
     Dates: start: 20210715, end: 20210715
  17. GEMCITABINE [Suspect]
     Active Substance: GEMCITABINE
     Dosage: 1.3 G, QD
     Route: 042
     Dates: start: 20210730, end: 20210730
  18. GEMCITABINE [Suspect]
     Active Substance: GEMCITABINE
     Dosage: 1.2 G, QD
     Route: 042
     Dates: start: 20210806, end: 20210806
  19. GEMCITABINE [Suspect]
     Active Substance: GEMCITABINE
     Dosage: 1.3 G, QD
     Route: 042
     Dates: start: 20210819, end: 20210819
  20. GEMCITABINE [Suspect]
     Active Substance: GEMCITABINE
     Dosage: 0.67 G, QD
     Route: 042
     Dates: start: 20210826, end: 20210826
  21. GEMCITABINE [Suspect]
     Active Substance: GEMCITABINE
     Dosage: 1.3 G, QD
     Route: 042
     Dates: start: 20210917, end: 20210917
  22. GEMCITABINE [Suspect]
     Active Substance: GEMCITABINE
     Dosage: 1.3 G, QD
     Route: 042
     Dates: start: 20210925, end: 20210925
  23. GEMCITABINE [Suspect]
     Active Substance: GEMCITABINE
     Dosage: 1.3 G, QD
     Route: 042
     Dates: start: 20211009, end: 20211009
  24. OXALIPLATIN [Suspect]
     Active Substance: OXALIPLATIN
     Indication: Peripheral T-cell lymphoma unspecified
     Dosage: 171.6 MG, QD
     Route: 042
     Dates: start: 20210617, end: 20210617
  25. OXALIPLATIN [Suspect]
     Active Substance: OXALIPLATIN
     Indication: Angiocentric lymphoma
     Dosage: 167.7 MG, QD
     Route: 042
     Dates: start: 20210708, end: 20210708
  26. OXALIPLATIN [Suspect]
     Active Substance: OXALIPLATIN
     Dosage: 160 MG, QD
     Route: 042
     Dates: start: 20210730, end: 20210730
  27. OXALIPLATIN [Suspect]
     Active Substance: OXALIPLATIN
     Dosage: 160 MG, QD
     Route: 042
     Dates: start: 20210819, end: 20210819
  28. OXALIPLATIN [Suspect]
     Active Substance: OXALIPLATIN
     Dosage: 160 MG, QD
     Route: 042
     Dates: start: 20210917, end: 20210917
  29. OXALIPLATIN [Suspect]
     Active Substance: OXALIPLATIN
     Dosage: 160 MG, QD
     Route: 042
     Dates: start: 20211009, end: 20211009

REACTIONS (3)
  - Neutrophil count decreased [Recovered/Resolved]
  - Platelet count decreased [Recovered/Resolved]
  - Incorrect dose administered [Recovered/Resolved]

NARRATIVE: CASE EVENT DATE: 20211010
